FAERS Safety Report 8189199-1 (Version None)
Quarter: 2012Q1

REPORT INFORMATION
  Report Type: 
  Country: None (occurrence: None)
  Receive Date: 20120306
  Receipt Date: 20120306
  Transmission Date: 20120608
  Serious: Yes (Hospitalization)
  Sender: FDA-Public Use
  Company Number: None

PATIENT
  Sex: Male
  Weight: 67.9 kg

DRUGS (2)
  1. CARBOPLATIN [Suspect]
     Indication: HEAD AND NECK CANCER
     Dosage: 250 MG, 1X WEEKLY, IV
     Route: 042
     Dates: start: 20120213
  2. CARBOPLATIN [Suspect]

REACTIONS (2)
  - NAUSEA [None]
  - VOMITING [None]
